FAERS Safety Report 8589459-6 (Version None)
Quarter: 2012Q3

REPORT INFORMATION
  Report Type: 
  Country: None (occurrence: None)
  Receive Date: 20120813
  Receipt Date: 20120809
  Transmission Date: 20120928
  Serious: Yes (Other)
  Sender: FDA-Public Use
  Company Number: JP-B.I. PHARMACEUTICALS,INC./RIDGEFIELD-2012-BP-18709NB

PATIENT
  Age: 8 Decade
  Sex: Female

DRUGS (4)
  1. TELMISARTAN AND HYDROCHLOROTHIAZIDE [Suspect]
     Route: 065
  2. VERAPAMIL HCL [Concomitant]
     Route: 065
  3. AMLODIPINE [Concomitant]
     Route: 065
  4. TELMISARTAN AND HYDROCHLOROTHIAZIDE [Suspect]
     Route: 065

REACTIONS (2)
  - CEREBRAL INFARCTION [None]
  - HYPONATRAEMIA [None]
